FAERS Safety Report 9320195 (Version 3)
Quarter: 2013Q3

REPORT INFORMATION
  Report Type: Spontaneous
  Country: US (occurrence: US)
  Receive Date: 20130530
  Receipt Date: 20130726
  Transmission Date: 20140515
  Serious: No
  Sender: FDA-Public Use
  Company Number: US-009507513-1305USA016448

PATIENT
  Sex: Female
  Weight: 68.48 kg

DRUGS (1)
  1. NEXPLANON [Suspect]
     Dosage: 1 68 MG ROD UP TO 3 YEARS
     Route: 059
     Dates: start: 20130425

REACTIONS (2)
  - Nausea [Unknown]
  - Breast tenderness [Unknown]
